FAERS Safety Report 4757623-X (Version None)
Quarter: 2005Q3

REPORT INFORMATION
  Report Type: 
  Country: None (occurrence: None)
  Receive Date: 20050831
  Receipt Date: 20050531
  Transmission Date: 20060218
  Serious: Yes (Life-Threatening, Hospitalization, Other)
  Sender: FDA-Public Use
  Company Number: PHBS2005JP07801

PATIENT
  Age: 71 Year
  Sex: Male

DRUGS (14)
  1. DIOVAN [Suspect]
     Indication: HYPERTENSION
     Dosage: 80 MG, QD
     Route: 048
     Dates: start: 20040305, end: 20050527
  2. EUGLUCON [Suspect]
     Indication: DIABETES MELLITUS
     Dosage: 5 MG, BID
     Route: 048
     Dates: start: 20041124, end: 20050527
  3. GLUCOBAY [Suspect]
     Indication: DIABETES MELLITUS
     Dosage: 100 MG, TID
     Route: 048
     Dates: start: 20040318, end: 20050527
  4. DIART [Concomitant]
     Indication: OEDEMA
     Dates: start: 20050404, end: 20050527
  5. THEO-DUR [Concomitant]
     Indication: ASTHMA
     Dosage: 400 MG, UNK
     Route: 048
     Dates: start: 20040305
  6. ASPARA K [Concomitant]
     Indication: HYPOKALAEMIA
     Dosage: 1200 MG, UNK
     Route: 048
     Dates: start: 20050221, end: 20050527
  7. LAC B [Concomitant]
     Dosage: 1 G, UNK
     Route: 048
     Dates: start: 20050404, end: 20050527
  8. DORAL [Concomitant]
     Indication: INSOMNIA
     Dosage: 15 MG, UNK
     Route: 048
     Dates: start: 20050510, end: 20050527
  9. HOKUNALIN [Concomitant]
     Indication: ASTHMA
     Dosage: 2 MG, UNK
     Route: 061
     Dates: start: 20030414
  10. PULMICORT [Concomitant]
     Indication: ASTHMA
     Dosage: 400 MG, UNK
     Dates: start: 20040707
  11. HYTHIOL [Concomitant]
     Indication: ASTHMA
     Dosage: 0.2 MG, UNK
     Route: 048
  12. ACTOS [Concomitant]
  13. BASEN [Concomitant]
     Indication: DIABETES MELLITUS
  14. SELECTOL [Concomitant]

REACTIONS (8)
  - ASTHENIA [None]
  - DIABETES MELLITUS INADEQUATE CONTROL [None]
  - DYSSTASIA [None]
  - FEELING ABNORMAL [None]
  - HYPOGLYCAEMIA [None]
  - LOSS OF CONSCIOUSNESS [None]
  - MEMORY IMPAIRMENT [None]
  - RESTLESSNESS [None]
